FAERS Safety Report 10583879 (Version 2)
Quarter: 2015Q1

REPORT INFORMATION
  Report Type: Spontaneous
  Country: US (occurrence: US)
  Receive Date: 20141114
  Receipt Date: 20150202
  Transmission Date: 20150720
  Serious: Yes (Other)
  Sender: FDA-Public Use
  Company Number: US-BAYER-2014-167897

PATIENT
  Age: 24 Year
  Sex: Female
  Weight: 68.48 kg

DRUGS (2)
  1. MIRENA [Suspect]
     Active Substance: LEVONORGESTREL
     Indication: CONTRACEPTION
     Dosage: 20 MCG/24HR, CONT
     Route: 015
     Dates: start: 20130212, end: 201409
  2. TRIAMCINOLONE ACETONIDE. [Concomitant]
     Active Substance: TRIAMCINOLONE ACETONIDE
     Dosage: 0.1 %, UNK
     Route: 061

REACTIONS (15)
  - Feeling abnormal [None]
  - Polymenorrhoea [Recovered/Resolved]
  - Malaise [None]
  - Anxiety [Recovering/Resolving]
  - Emotional disorder [Recovering/Resolving]
  - Paranoia [Recovering/Resolving]
  - Fear [Recovering/Resolving]
  - Fatigue [None]
  - Insomnia [None]
  - Embedded device [Recovered/Resolved]
  - Major depression [Recovering/Resolving]
  - Vaginal haemorrhage [Recovered/Resolved]
  - Abdominal pain lower [None]
  - Asthenia [None]
  - Abdominal tenderness [None]

NARRATIVE: CASE EVENT DATE: 2013
